FAERS Safety Report 9699084 (Version 1)
Quarter: 2013Q4

REPORT INFORMATION
  Report Type: Spontaneous
  Country: US (occurrence: None)
  Receive Date: 20131104
  Receipt Date: 20131104
  Transmission Date: 20140711
  Serious: Yes (Hospitalization)
  Sender: FDA-Public Use
  Company Number: 2013038703

PATIENT
  Age: 52 Year
  Sex: Female
  Weight: 140.16 kg

DRUGS (26)
  1. ZEMAIRA [Suspect]
     Indication: ALPHA-1 ANTI-TRYPSIN DEFICIENCY
     Route: 042
  2. ZEMAIRA [Suspect]
     Indication: CHRONIC OBSTRUCTIVE PULMONARY DISEASE
     Route: 042
  3. ZEMAIRA [Suspect]
     Indication: ENZYME ABNORMALITY
     Route: 042
  4. BYSTOLIC (NEBIVOLOL) [Concomitant]
  5. LASIX (FUROSEMIDE) [Concomitant]
  6. POTASSIUM CL (POTASSIUM CHLORIDE) [Concomitant]
  7. PROZAC (FLUOXETINE HYDROCHLORIDE) [Concomitant]
  8. ZOLPIDEM (ZOLPIDEM) [Concomitant]
  9. ASPIRIN (ACETYLSALICYLIC ACID) [Concomitant]
  10. LORAZEPAM (LORAZEPAM) [Concomitant]
  11. PANTOPRAZOLE (PANTOPRAZOLE) [Concomitant]
  12. BUTALB/ACETAMIN/CAFF (AXOTAL) [Concomitant]
  13. ADVAIR (SERETIDE) [Concomitant]
  14. TIZANIDINE (TIZANIDINE) [Concomitant]
  15. ONDANSETRON (ONDANSETRON) [Concomitant]
  16. SPIRIVA (TIOTROPIUM BROMIDE) (TIOTROPIUM BROMIDE) [Concomitant]
  17. ACETAMINOPHEN (PARACETAMOL) [Concomitant]
  18. LORTAB (LORTAB) [Concomitant]
  19. DIPHENHYDRAMINE (DIPHENHYDRAMINE) [Concomitant]
  20. HEPARIN (HELPARIN) [Concomitant]
  21. SODIUM CHLORIDE [Concomitant]
  22. EPI PEN (EPINEPHRINE) [Concomitant]
  23. LMX (LIDOCAINE) [Concomitant]
  24. ZYRTEC (CETIRIZINE HYDROCHLORIDE) [Concomitant]
  25. OXYCODONE (OXYCODONE) [Concomitant]
  26. WELLBUTRIN (BUPROPION) [Concomitant]

REACTIONS (3)
  - Swelling [None]
  - Local swelling [None]
  - Oedema [None]
